FAERS Safety Report 19680293 (Version 1)
Quarter: 2021Q3

REPORT INFORMATION
  Report Type: Spontaneous
  Country: US (occurrence: US)
  Receive Date: 20210809
  Receipt Date: 20210809
  Transmission Date: 20211014
  Serious: Yes (Other)
  Sender: FDA-Public Use
  Company Number: None

PATIENT
  Age: 61 Year
  Sex: Female
  Weight: 127.01 kg

DRUGS (2)
  1. PROAIR HFA [Suspect]
     Active Substance: ALBUTEROL SULFATE
     Indication: PRODUCT USED FOR UNKNOWN INDICATION
     Dosage: FREQUENCY: RESCUE INHALER
     Route: 055
     Dates: start: 20210601
  2. PROAIR HFA [Suspect]
     Active Substance: ALBUTEROL SULFATE
     Indication: DYSPNOEA
     Dosage: FREQUENCY: RESCUE INHALER
     Route: 055
     Dates: start: 20210601

REACTIONS (3)
  - Device failure [None]
  - Asthma [None]
  - Stress [None]

NARRATIVE: CASE EVENT DATE: 20210808
